FAERS Safety Report 6618151-X (Version None)
Quarter: 2010Q1

REPORT INFORMATION
  Report Type: 
  Country: None (occurrence: None)
  Receive Date: 20100308
  Receipt Date: 20100224
  Transmission Date: 20100710
  Serious: Yes (Other)
  Sender: FDA-Public Use
  Company Number: JP-PFIZER INC-2010022754

PATIENT
  Age: 62 Year
  Sex: Male

DRUGS (10)
  1. ZYVOX [Suspect]
     Indication: WOUND INFECTION STAPHYLOCOCCAL
     Dosage: 1200 MG, 1X/DAY
     Route: 042
     Dates: start: 20091208, end: 20091220
  2. ZYVOX [Suspect]
     Dosage: 1200 MG, 1X/DAY
     Route: 048
     Dates: start: 20091221, end: 20091223
  3. ISOSORBIDE DINITRATE [Concomitant]
     Dosage: UNK
     Route: 062
  4. GLYCYRON [Concomitant]
     Dosage: UNK
     Route: 048
  5. HYDANTOL F [Concomitant]
     Dosage: UNK
     Route: 048
  6. CERCINE [Concomitant]
     Dosage: UNK
     Route: 048
  7. ANPLAG [Concomitant]
     Dosage: UNK
     Route: 048
  8. BERAPROST SODIUM [Concomitant]
     Dosage: UNK
     Route: 048
  9. LAFUTIDINE [Concomitant]
     Dosage: UNK
     Route: 048
  10. MEROPENEM [Concomitant]
     Route: 042

REACTIONS (5)
  - CHEILITIS [None]
  - DYSGEUSIA [None]
  - RASH GENERALISED [None]
  - SWOLLEN TONGUE [None]
  - TONGUE DISCOLOURATION [None]
